FAERS Safety Report 4837360-3 (Version None)
Quarter: 2005Q4

REPORT INFORMATION
  Report Type: 
  Country: None (occurrence: None)
  Receive Date: 20051122
  Receipt Date: 20051110
  Transmission Date: 20060501
  Serious: Yes (Hospitalization)
  Sender: FDA-Public Use
  Company Number: 2005P1000265

PATIENT
  Age: 67 Year
  Sex: Male
  Weight: 110 kg

DRUGS (14)
  1. RETEPLASE (ABCIXIMAB) [Suspect]
     Indication: ACUTE MYOCARDIAL INFARCTION
     Dosage: 1X; IV
     Route: 042
     Dates: start: 20050709, end: 20050709
  2. ABCIXIMAB (ABCIXIMAB) [Suspect]
     Indication: ACUTE MYOCARDIAL INFARCTION
     Dosage: IV
     Route: 042
     Dates: start: 20050709
  3. FUROSEMIDE [Concomitant]
  4. OXYGEN [Concomitant]
  5. SIMVASTATIN [Concomitant]
  6. ASPIRIN [Concomitant]
  7. DIGOXIN [Concomitant]
  8. CLOPIDOGREL BISULFATE [Concomitant]
  9. RAMIPRIL [Concomitant]
  10. SALBUTAMOL [Concomitant]
  11. TIOTROPIUM BROMIDE [Concomitant]
  12. ANTICHOLINERGIC AGENTS [Concomitant]
  13. ZOPLICONE [Concomitant]
  14. CEPHALEXIN [Concomitant]

REACTIONS (12)
  - ATRIAL FIBRILLATION [None]
  - ATRIAL FLUTTER [None]
  - CARDIAC MURMUR [None]
  - CHRONIC OBSTRUCTIVE PULMONARY DISEASE [None]
  - CONDITION AGGRAVATED [None]
  - IRON DEFICIENCY ANAEMIA [None]
  - LOBAR PNEUMONIA [None]
  - MOBILITY DECREASED [None]
  - PITTING OEDEMA [None]
  - PULMONARY OEDEMA [None]
  - RENAL IMPAIRMENT [None]
  - VENOUS PRESSURE JUGULAR INCREASED [None]
